FAERS Safety Report 9354544 (Version 1)
Quarter: 2013Q2

REPORT INFORMATION
  Report Type: Report from Study
  Country: CA (occurrence: CA)
  Receive Date: 20130618
  Receipt Date: 20130618
  Transmission Date: 20140414
  Serious: Yes (Hospitalization)
  Sender: FDA-Public Use
  Company Number: CA-UCBSA-088607

PATIENT
  Age: 51 Year
  Sex: Female
  Weight: 63 kg

DRUGS (7)
  1. CIMZIA [Suspect]
     Indication: RHEUMATOID ARTHRITIS
     Route: 058
     Dates: start: 20110915, end: 2013
  2. CIMZIA [Suspect]
     Indication: RHEUMATOID ARTHRITIS
     Dosage: X 3
     Route: 058
     Dates: start: 20110719, end: 20110902
  3. FOLIC ACID [Concomitant]
     Indication: GENERAL PHYSICAL HEALTH DETERIORATION
     Dosage: UNKNOWN DOSE; DAILY
     Route: 048
  4. METHOTREXATE [Concomitant]
     Indication: RHEUMATOID ARTHRITIS
     Dosage: UNKNOWN DOSE; WEEKLY
     Route: 058
  5. SULFASALAZINE [Concomitant]
     Indication: RHEUMATOID ARTHRITIS
     Dosage: UNKNOWN DOSE; DAILY
     Route: 048
  6. PREDNISONE [Concomitant]
     Indication: RHEUMATOID ARTHRITIS
     Dosage: UNKNOWN DOSE; DAILY
     Route: 048
  7. TRAZADONE [Concomitant]
     Indication: SEDATION
     Dosage: 50 MG DAILY
     Route: 048

REACTIONS (4)
  - Upper limb fracture [Recovering/Resolving]
  - Clavicle fracture [Recovering/Resolving]
  - Haemorrhage [Recovering/Resolving]
  - Road traffic accident [Recovering/Resolving]
